FAERS Safety Report 8204396-4 (Version None)
Quarter: 2012Q1

REPORT INFORMATION
  Report Type: 
  Country: None (occurrence: None)
  Receive Date: 20120313
  Receipt Date: 20120313
  Transmission Date: 20120608
  Serious: Yes (Other)
  Sender: FDA-Public Use
  Company Number: None

PATIENT
  Age: 50 Year
  Sex: Male
  Weight: 93.893 kg

DRUGS (2)
  1. CIPRO [Suspect]
     Indication: URINARY TRACT INFECTION
     Dosage: 500 MG
     Route: 048
     Dates: start: 20120221, end: 20120225
  2. CIPRO [Suspect]
     Indication: PROSTATITIS
     Dosage: 500 MG
     Route: 048
     Dates: start: 20120221, end: 20120225

REACTIONS (7)
  - TEMPERATURE REGULATION DISORDER [None]
  - FATIGUE [None]
  - MUSCULAR WEAKNESS [None]
  - PARAESTHESIA [None]
  - TENDON RUPTURE [None]
  - DISTURBANCE IN ATTENTION [None]
  - INSOMNIA [None]
